FAERS Safety Report 16284404 (Version 2)
Quarter: 2019Q2

REPORT INFORMATION
  Report Type: Spontaneous
  Country: ES (occurrence: ES)
  Receive Date: 20190508
  Receipt Date: 20190529
  Transmission Date: 20190711
  Serious: Yes (Other)
  Sender: FDA-Public Use
  Company Number: ES-AUROBINDO-AUR-APL-2019-024522

PATIENT

DRUGS (5)
  1. LOSARTAN POTASSIUM/HYDROCHLOROTHIAZIDE FILM-COATED TABLET 100+ [Suspect]
     Active Substance: HYDROCHLOROTHIAZIDE\LOSARTAN POTASSIUM
     Indication: HYPERTENSION
     Dosage: UNK UNK, ONCE A DAY
     Route: 048
     Dates: start: 20160513
  2. FORSTEO [Concomitant]
     Active Substance: TERIPARATIDE
     Indication: OSTEOARTHRITIS
     Dosage: 2.4 MILLILITER, ONCE A DAY (1 PREFILLED PEN 2.4 ML REGIMEN)
     Route: 065
     Dates: start: 20160808
  3. METFORMIN [Concomitant]
     Active Substance: METFORMIN HYDROCHLORIDE
     Indication: TYPE 2 DIABETES MELLITUS
     Dosage: UNK UNK, TWO TIMES A DAY
     Route: 065
     Dates: start: 20110101
  4. OMEPRAZOL 20MG GASTRO-RESISTANT HARD CAPSULES [Interacting]
     Active Substance: OMEPRAZOLE
     Indication: PEPTIC ULCER
     Dosage: UNK UNK, ONCE A DAY
     Route: 065
     Dates: start: 20110101
  5. PARACETAMOL [Concomitant]
     Active Substance: ACETAMINOPHEN
     Indication: OSTEOARTHRITIS
     Dosage: UNK
     Route: 065
     Dates: start: 20110101

REACTIONS (9)
  - Fatigue [Unknown]
  - Hypomagnesaemia [Unknown]
  - Drug interaction [Recovering/Resolving]
  - Vitamin B12 deficiency [Recovered/Resolved]
  - Folate deficiency [Recovered/Resolved]
  - Apathy [Unknown]
  - Anaemia megaloblastic [Recovering/Resolving]
  - Asthenia [Recovering/Resolving]
  - Weight decreased [Recovering/Resolving]

NARRATIVE: CASE EVENT DATE: 20170407
